FAERS Safety Report 5904893-8 (Version None)
Quarter: 2008Q4

REPORT INFORMATION
  Report Type: 
  Country: None (occurrence: None)
  Receive Date: 20081001
  Receipt Date: 20080930
  Transmission Date: 20090506
  Serious: Yes (Hospitalization, Other)
  Sender: FDA-Public Use
  Company Number: B0532376A

PATIENT
  Age: 38 Year
  Sex: Male

DRUGS (2)
  1. SAWACILLIN [Suspect]
     Route: 048
     Dates: start: 20080326, end: 20080331
  2. PREDNISOLONE [Concomitant]
     Indication: PUSTULAR PSORIASIS
     Route: 065

REACTIONS (4)
  - ACUTE GENERALISED EXANTHEMATOUS PUSTULOSIS [None]
  - DERMATITIS EXFOLIATIVE [None]
  - PYREXIA [None]
  - RASH PUSTULAR [None]
